FAERS Safety Report 4905830-5 (Version None)
Quarter: 2006Q1

REPORT INFORMATION
  Report Type: 
  Country: None (occurrence: None)
  Receive Date: 20060203
  Receipt Date: 20060118
  Transmission Date: 20060701
  Serious: Yes (Hospitalization)
  Sender: FDA-Public Use
  Company Number: DSA_26737_2005

PATIENT
  Age: 56 Year
  Sex: Male

DRUGS (14)
  1. ATIVAN [Suspect]
     Dosage: DF;
  2. EFFEXOR [Suspect]
     Dosage: DF,
  3. IL13-PE38QQR [Suspect]
     Dosage: DF, Q DAY;
     Dates: start: 20050523, end: 20050527
  4. GLIADEL [Suspect]
     Dosage: DF, Q, DAY;
     Dates: start: 20050523, end: 20050527
  5. KEPPRA [Concomitant]
  6. SEROQUEL [Concomitant]
  7. DILANTIN KAPSEAL [Concomitant]
  8. ZANTAC [Concomitant]
  9. RISPERDAL [Concomitant]
  10. BACLOFEN [Concomitant]
  11. ATACAND HCT [Concomitant]
  12. DITROPAN XL [Concomitant]
  13. DECADRON SRC [Concomitant]
  14. DECADRON SRC [Concomitant]

REACTIONS (5)
  - CEREBRAL VENTRICLE DILATATION [None]
  - DEPRESSED LEVEL OF CONSCIOUSNESS [None]
  - SOMNOLENCE [None]
  - URINARY TRACT INFECTION [None]
  - WHITE BLOOD CELL COUNT INCREASED [None]
